FAERS Safety Report 4735720-2 (Version None)
Quarter: 2005Q3

REPORT INFORMATION
  Report Type: 
  Country: None (occurrence: None)
  Receive Date: 20050804
  Receipt Date: 20050725
  Transmission Date: 20060218
  Serious: Yes (Other)
  Sender: FDA-Public Use
  Company Number: 2005098082

PATIENT
  Age: 75 Year
  Sex: Male
  Weight: 56.6996 kg

DRUGS (4)
  1. XALATAN [Suspect]
     Indication: GLAUCOMA
     Dosage: 3 MCG (1 DROP, 1 IN 1 D), OPHTHALMIC
     Route: 047
     Dates: start: 20041001
  2. BETIMOL (TIMOLOL) [Concomitant]
  3. COSOPT [Concomitant]
  4. ALL OTHER THERAPEUTIC PRODUCTS [Concomitant]

REACTIONS (2)
  - HEADACHE [None]
  - INTRAOCULAR PRESSURE INCREASED [None]
